FAERS Safety Report 6874501-0 (Version None)
Quarter: 2010Q3

REPORT INFORMATION
  Report Type: 
  Country: None (occurrence: None)
  Receive Date: 20100723
  Receipt Date: 20100723
  Transmission Date: 20110219
  Serious: Yes (Life-Threatening)
  Sender: FDA-Public Use
  Company Number: None

PATIENT
  Age: 51 Year
  Sex: Male
  Weight: 75.4 kg

DRUGS (13)
  1. ISENTRESS [Suspect]
     Indication: ACQUIRED IMMUNODEFICIENCY SYNDROME
     Dosage: 400 MG TWICE DAILY PO
     Route: 048
     Dates: start: 20100315, end: 20100614
  2. LOTREL [Concomitant]
  3. ATENOLOL [Concomitant]
  4. DARUNAVIR [Concomitant]
  5. RITONAVIR [Concomitant]
  6. ETRAVIRINE [Concomitant]
  7. LEXAPRO [Concomitant]
  8. OLANZAPINE [Concomitant]
  9. QUETIAPINE [Concomitant]
  10. RANITIDINE [Concomitant]
  11. BACTRIM DS [Concomitant]
  12. FUROSEMIDE [Concomitant]
  13. ESOMEPRAZOLE MAGNESIUM [Concomitant]

REACTIONS (2)
  - MYOSITIS [None]
  - PAIN IN EXTREMITY [None]
